FAERS Safety Report 8825129 (Version 2)
Quarter: 2015Q2

REPORT INFORMATION
  Report Type: Report from Study
  Country: US (occurrence: US)
  Receive Date: 20121004
  Receipt Date: 20150416
  Transmission Date: 20150821
  Serious: Yes (Death)
  Sender: FDA-Public Use
  Company Number: US-ROCHE-1096230

PATIENT
  Sex: Female

DRUGS (8)
  1. RITUXAN [Suspect]
     Active Substance: RITUXIMAB
     Indication: MALIGNANT LYMPHOID NEOPLASM
     Route: 050
     Dates: start: 20000417
  2. RITUXAN [Suspect]
     Active Substance: RITUXIMAB
     Indication: MALIGNANT HISTIOCYTOSIS
     Route: 050
  3. CYCLOPHOSPHAMIDE. [Concomitant]
     Active Substance: CYCLOPHOSPHAMIDE
  4. BENADRYL [Concomitant]
     Active Substance: DIPHENHYDRAMINE HYDROCHLORIDE
     Route: 065
  5. PREDNISONE. [Concomitant]
     Active Substance: PREDNISONE
  6. TYLENOL [Concomitant]
     Active Substance: ACETAMINOPHEN
     Route: 065
  7. HYDROXYDAUNORUBICIN [Concomitant]
     Active Substance: DOXORUBICIN
  8. VINCRISTINE [Concomitant]
     Active Substance: VINCRISTINE

REACTIONS (4)
  - Death [Fatal]
  - Decreased appetite [Unknown]
  - Dyspnoea [Recovered/Resolved]
  - Fatigue [Unknown]
